FAERS Safety Report 25196455 (Version 1)
Quarter: 2025Q2

REPORT INFORMATION
  Report Type: Spontaneous
  Country: FR (occurrence: FR)
  Receive Date: 20250415
  Receipt Date: 20250415
  Transmission Date: 20250716
  Serious: Yes (Other)
  Sender: AMICUS THERAPEUTICS
  Company Number: FR-AMICUS THERAPEUTICS, INC.-AMI_3930

PATIENT
  Sex: Male

DRUGS (1)
  1. GALAFOLD [Suspect]
     Active Substance: MIGALASTAT HYDROCHLORIDE
     Indication: Product used for unknown indication
     Dosage: 123 MILLIGRAM, QOD
     Route: 048

REACTIONS (3)
  - Renal impairment [Unknown]
  - Cardiac disorder [Unknown]
  - Condition aggravated [Unknown]
